FAERS Safety Report 4677996-6 (Version None)
Quarter: 2005Q2

REPORT INFORMATION
  Report Type: 
  Country: None (occurrence: None)
  Receive Date: 20050531
  Receipt Date: 20050413
  Transmission Date: 20051028
  Serious: Yes (Hospitalization, Disabling)
  Sender: FDA-Public Use
  Company Number: 2005UW05783

PATIENT
  Age: 73 Year
  Sex: Male

DRUGS (10)
  1. CRESTOR [Suspect]
     Indication: BLOOD CHOLESTEROL
     Route: 048
     Dates: end: 20050101
  2. CRESTOR [Suspect]
     Route: 048
     Dates: start: 20050131, end: 20050221
  3. SEPTRA [Suspect]
     Indication: URINARY TRACT INFECTION
     Route: 048
  4. ASPIRIN [Concomitant]
     Route: 048
  5. METFORMIN [Concomitant]
     Route: 048
  6. METOPROLOL [Concomitant]
     Route: 048
  7. PLAVIX [Concomitant]
     Route: 048
  8. REMINYL [Concomitant]
     Route: 048
  9. REMINYL [Concomitant]
     Route: 048
  10. TRIAZIDE [Concomitant]
     Dosage: 25/50 MG QD

REACTIONS (7)
  - BLOOD CREATINE PHOSPHOKINASE INCREASED [None]
  - DIFFICULTY IN WALKING [None]
  - MUSCULAR WEAKNESS [None]
  - NAUSEA [None]
  - RHABDOMYOLYSIS [None]
  - URINARY TRACT INFECTION [None]
  - VOMITING [None]
